FAERS Safety Report 8816567 (Version 1)
Quarter: 2012Q4

REPORT INFORMATION
  Report Type: Spontaneous
  Country: US (occurrence: None)
  Receive Date: 20121001
  Receipt Date: 20121001
  Transmission Date: 20130627
  Serious: No
  Sender: FDA-Public Use
  Company Number: None

PATIENT
  Age: 45 Year
  Sex: Female
  Weight: 90.72 kg

DRUGS (1)
  1. MIRENA [Suspect]

REACTIONS (12)
  - Mood swings [None]
  - Depression [None]
  - Fatigue [None]
  - Malaise [None]
  - Weight increased [None]
  - Hyperhidrosis [None]
  - Back pain [None]
  - Pelvic pain [None]
  - Rash [None]
  - Breast pain [None]
  - Menorrhagia [None]
  - Medical device complication [None]
